FAERS Safety Report 9291434 (Version 1)
Quarter: 2013Q2

REPORT INFORMATION
  Report Type: Spontaneous
  Country: US (occurrence: US)
  Receive Date: 20130515
  Receipt Date: 20130515
  Transmission Date: 20140414
  Serious: Yes (Other)
  Sender: FDA-Public Use
  Company Number: US-009507513-1305USA005503

PATIENT
  Sex: Male

DRUGS (2)
  1. ZOCOR [Suspect]
     Dosage: 20 MG, QD
  2. SIMVASTATIN [Suspect]

REACTIONS (3)
  - Renal failure [Unknown]
  - Muscle injury [Unknown]
  - Drug ineffective [Unknown]
